FAERS Safety Report 16278782 (Version 1)
Quarter: 2019Q2

REPORT INFORMATION
  Report Type: Spontaneous
  Country: CH (occurrence: CH)
  Receive Date: 20190506
  Receipt Date: 20190506
  Transmission Date: 20190711
  Serious: Yes (Hospitalization, Other)
  Sender: FDA-Public Use
  Company Number: CH-PFIZER INC-2019189549

PATIENT
  Age: 88 Year
  Sex: Female

DRUGS (9)
  1. PLAVIX [Concomitant]
     Active Substance: CLOPIDOGREL BISULFATE
     Dosage: UNK
  2. COVERSUM N [Concomitant]
     Active Substance: PERINDOPRIL
     Dosage: UNK
  3. ELIQUIS [Concomitant]
     Active Substance: APIXABAN
     Dosage: UNK
  4. ATORVASTATIN PFIZER [Concomitant]
     Active Substance: ATORVASTATIN
     Dosage: UNK
  5. ASPIRIN CARDIO [Concomitant]
     Active Substance: ASPIRIN
     Dosage: UNK
  6. TORASEMID SANDOZ ECO [Concomitant]
     Active Substance: TORSEMIDE
     Dosage: UNK
  7. METO ZEROK [Interacting]
     Active Substance: METOPROLOL SUCCINATE
     Dosage: UNK
     Route: 048
     Dates: end: 20190228
  8. PANTOZOL CONTROL [Concomitant]
     Active Substance: PANTOPRAZOLE SODIUM
     Dosage: UNK
  9. CORDARONE [Suspect]
     Active Substance: AMIODARONE HYDROCHLORIDE
     Dosage: 200 MG, TID
     Route: 048
     Dates: end: 20190228

REACTIONS (4)
  - Drug interaction [Unknown]
  - Atrioventricular block complete [Recovered/Resolved]
  - Nodal rhythm [Recovered/Resolved]
  - Bradycardia [Recovered/Resolved]

NARRATIVE: CASE EVENT DATE: 20190228
